FAERS Safety Report 5350747-8 (Version None)
Quarter: 2007Q2

REPORT INFORMATION
  Report Type: 
  Country: None (occurrence: None)
  Receive Date: 20070606
  Receipt Date: 20070606
  Transmission Date: 20071010
  Serious: Yes (Other)
  Sender: FDA-Public Use
  Company Number: None

PATIENT
  Sex: Female
  Weight: 62.5964 kg

DRUGS (1)
  1. SODIUM FERRIC GLUCONATE 62.5MG/5ML WATSON [Suspect]
     Indication: IRON DEFICIENCY ANAEMIA
     Dosage: 375MG ONE TIME INFUSION IV DRIP
     Route: 041
     Dates: start: 20070406, end: 20070406

REACTIONS (5)
  - BLOOD PRESSURE DECREASED [None]
  - BLOOD PRESSURE IMMEASURABLE [None]
  - CHEST DISCOMFORT [None]
  - PRURITUS [None]
  - RASH [None]
